FAERS Safety Report 16780268 (Version 1)
Quarter: 2019Q3

REPORT INFORMATION
  Report Type: Report from Study
  Country: US (occurrence: US)
  Receive Date: 20190906
  Receipt Date: 20190906
  Transmission Date: 20191005
  Serious: Yes (Hospitalization, Other)
  Sender: FDA-Public Use
  Company Number: US-JNJFOC-20190902699

PATIENT
  Age: 64 Year
  Sex: Male

DRUGS (24)
  1. BASAGLAR [Concomitant]
     Active Substance: INSULIN GLARGINE
  2. NOVOLOG [Concomitant]
     Active Substance: INSULIN ASPART
  3. CHLORPROMAZINE. [Concomitant]
     Active Substance: CHLORPROMAZINE
  4. VENTOLIN [Concomitant]
     Active Substance: ALBUTEROL SULFATE
  5. TEMAZEPAM. [Concomitant]
     Active Substance: TEMAZEPAM
  6. OXYCODONE [Concomitant]
     Active Substance: OXYCODONE
  7. FLUTICASONE FUROATE W/VILANTEROL TRIFENATATE [Concomitant]
     Active Substance: FLUTICASONE FUROATE\VILANTEROL TRIFENATATE
  8. HYDROCHLOROTHIAZIDE. [Concomitant]
     Active Substance: HYDROCHLOROTHIAZIDE
  9. FUROSEMIDE. [Concomitant]
     Active Substance: FUROSEMIDE
  10. METOPROLOL. [Concomitant]
     Active Substance: METOPROLOL
  11. SERTRALINE [Concomitant]
     Active Substance: SERTRALINE HYDROCHLORIDE
  12. FAMOTIDINE. [Concomitant]
     Active Substance: FAMOTIDINE
  13. AMLODIPINE [Concomitant]
     Active Substance: AMLODIPINE BESYLATE
  14. METOCLOPRAMIDE. [Concomitant]
     Active Substance: METOCLOPRAMIDE
  15. CHOLESTYRAMINE. [Concomitant]
     Active Substance: CHOLESTYRAMINE
  16. LORAZEPAM. [Concomitant]
     Active Substance: LORAZEPAM
  17. IMBRUVICA [Suspect]
     Active Substance: IBRUTINIB
     Indication: NON-HODGKIN^S LYMPHOMA
     Dosage: 560 MG, QD
     Route: 048
     Dates: start: 20190417
  18. LORATADINE. [Concomitant]
     Active Substance: LORATADINE
  19. PROCHLORPERAZINE. [Concomitant]
     Active Substance: PROCHLORPERAZINE
  20. LISINOPRIL. [Concomitant]
     Active Substance: LISINOPRIL
  21. MELOXICAM. [Concomitant]
     Active Substance: MELOXICAM
  22. TAMSULOSIN [Concomitant]
     Active Substance: TAMSULOSIN
  23. LYRICA [Concomitant]
     Active Substance: PREGABALIN
  24. METHYLPHENIDATE. [Concomitant]
     Active Substance: METHYLPHENIDATE

REACTIONS (4)
  - Hypertension [Not Recovered/Not Resolved]
  - Blood glucose decreased [Not Recovered/Not Resolved]
  - Dyspnoea [Not Recovered/Not Resolved]
  - Constipation [Not Recovered/Not Resolved]

NARRATIVE: CASE EVENT DATE: 20190825
